FAERS Safety Report 14405241 (Version 1)
Quarter: 2018Q1

REPORT INFORMATION
  Report Type: Spontaneous
  Country: JP (occurrence: JP)
  Receive Date: 20180118
  Receipt Date: 20180118
  Transmission Date: 20180509
  Serious: Yes (Other)
  Sender: FDA-Public Use
  Company Number: JP-ROCHE-2053549

PATIENT
  Age: 53 Year
  Sex: Female
  Weight: 42 kg

DRUGS (20)
  1. PERJETA [Suspect]
     Active Substance: PERTUZUMAB
     Indication: BREAST CANCER
     Dosage: THE FRACTIONATION DOSE FREQUENCY IS UNCERTAIN. ?DOSE INTERVAL UNCERTAINTY
     Route: 041
     Dates: start: 20170829
  2. PACLITAXEL. [Suspect]
     Active Substance: PACLITAXEL
     Dosage: THE FRACTIONATION DOSE FREQUENCY IS UNCERTAIN. ?DOSE INTERVAL UNCERTAINTY
     Route: 041
     Dates: start: 20170914
  3. PACLITAXEL. [Suspect]
     Active Substance: PACLITAXEL
     Dosage: THE FRACTIONATION DOSE FREQUENCY IS UNCERTAIN. ?DOSE INTERVAL UNCERTAINTY
     Route: 041
     Dates: start: 2017
  4. OXYCODONE [Concomitant]
     Active Substance: OXYCODONE
     Dosage: DOSAGE IS UNCERTAIN.
     Route: 048
  5. HERCEPTIN [Suspect]
     Active Substance: TRASTUZUMAB
     Indication: BREAST CANCER
     Dosage: THE FRACTIONATION DOSE FREQUENCY IS UNCERTAIN. ?DOSE INTERVAL UNCERTAINTY
     Route: 041
     Dates: start: 20170810
  6. PERJETA [Suspect]
     Active Substance: PERTUZUMAB
     Dosage: THE FRACTIONATION DOSE FREQUENCY IS UNCERTAIN. ?DOSE INTERVAL UNCERTAINTY
     Route: 041
     Dates: start: 2017
  7. LANSOPRAZOLE TAIYO OD [Concomitant]
     Dosage: DOSAGE IS UNCERTAIN.
     Route: 048
  8. HERCEPTIN [Suspect]
     Active Substance: TRASTUZUMAB
     Dosage: THE FRACTIONATION DOSE FREQUENCY IS UNCERTAIN. ?DOSE INTERVAL UNCERTAINTY
     Route: 041
     Dates: start: 2017
  9. PACLITAXEL. [Suspect]
     Active Substance: PACLITAXEL
     Indication: BREAST CANCER
     Dosage: THE FRACTIONATION DOSE FREQUENCY IS UNCERTAIN. ?DOSE INTERVAL UNCERTAINTY
     Route: 041
     Dates: start: 20170829
  10. SYMPROIC [Concomitant]
     Active Substance: NALDEMEDINE
     Dosage: DOSAGE IS UNCERTAIN.
     Route: 048
  11. BETAMETHASONE. [Concomitant]
     Active Substance: BETAMETHASONE
     Dosage: DOSAGE IS UNCERTAIN.
     Route: 048
  12. BROTIZOLAM [Concomitant]
     Active Substance: BROTIZOLAM
     Dosage: DOSAGE IS UNCERTAIN.
     Route: 048
  13. HERCEPTIN [Suspect]
     Active Substance: TRASTUZUMAB
     Dosage: THE FRACTIONATION DOSE FREQUENCY IS UNCERTAIN. ?DOSE INTERVAL UNCERTAINTY
     Route: 041
     Dates: start: 20170817
  14. HERCEPTIN [Suspect]
     Active Substance: TRASTUZUMAB
     Dosage: THE FRACTIONATION DOSE FREQUENCY IS UNCERTAIN. ?DOSE INTERVAL UNCERTAINTY
     Route: 041
     Dates: start: 20170829
  15. HERBAL NOS [Concomitant]
     Active Substance: HERBALS
     Dosage: DOSAGE IS UNCERTAIN.
     Route: 048
  16. PACLITAXEL. [Suspect]
     Active Substance: PACLITAXEL
     Dosage: THE FRACTIONATION DOSE FREQUENCY IS UNCERTAIN. ?DOSE INTERVAL UNCERTAINTY
     Route: 041
     Dates: start: 20170905
  17. TERPERAN [Concomitant]
     Active Substance: METOCLOPRAMIDE HYDROCHLORIDE
     Dosage: DOSAGE IS UNCERTAIN.
     Route: 048
  18. LOXOMARIN [Concomitant]
     Active Substance: LOXOPROFEN
     Dosage: DOSAGE IS UNCERTAIN.
     Route: 048
  19. MAGMITT [Concomitant]
     Active Substance: MAGNESIUM OXIDE
     Dosage: DOSAGE IS UNCERTAIN.
     Route: 048
  20. OXINORM (JAPAN) [Concomitant]
     Active Substance: OXYCODONE HYDROCHLORIDE
     Dosage: DOSAGE IS UNCERTAIN.
     Route: 048

REACTIONS (1)
  - Interstitial lung disease [Not Recovered/Not Resolved]

NARRATIVE: CASE EVENT DATE: 20171129
